FAERS Safety Report 4566449-1 (Version None)
Quarter: 2005Q1

REPORT INFORMATION
  Report Type: 
  Country: None (occurrence: None)
  Receive Date: 20050128
  Receipt Date: 20041220
  Transmission Date: 20050727
  Serious: Yes (Other)
  Sender: FDA-Public Use
  Company Number: 2004116315

PATIENT
  Age: 85 Year
  Sex: Female
  Weight: 50.8029 kg

DRUGS (4)
  1. DETROL LA [Suspect]
     Indication: HYPERTONIC BLADDER
     Dosage: 4 MG (4 MG), ORAL
     Route: 048
     Dates: start: 20000101
  2. ALENDRONATE SODIUM [Concomitant]
  3. ESOMEPRAZOLE (ESOMEPRAZOLE) [Concomitant]
  4. FAMOTIDINE [Concomitant]

REACTIONS (3)
  - FALL [None]
  - HAEMATOMA [None]
  - PAIN IN EXTREMITY [None]
